FAERS Safety Report 4308761-7 (Version None)
Quarter: 2004Q1

REPORT INFORMATION
  Report Type: 
  Country: None (occurrence: None)
  Receive Date: 20040227
  Receipt Date: 20040212
  Transmission Date: 20041129
  Serious: Yes (Life-Threatening)
  Sender: FDA-Public Use
  Company Number: ATO-04-0141 (0)

PATIENT
  Age: 43 Year
  Sex: Male
  Weight: 78.8 kg

DRUGS (22)
  1. TRISENOX [Suspect]
     Indication: ACUTE PROMYELOCYTIC LEUKAEMIA
     Dosage: 12 MG DAILY, IV
     Route: 042
     Dates: start: 20040206, end: 20040211
  2. ANCEF [Concomitant]
  3. FORTAZ [Concomitant]
  4. DOPAMINE HCL [Concomitant]
  5. LASIX [Concomitant]
  6. DILANTIN [Concomitant]
  7. DECADRON [Concomitant]
  8. GUAIFENESIN [Concomitant]
  9. TESSALON [Concomitant]
  10. NYSTATIN [Concomitant]
  11. TPN [Concomitant]
  12. POTASSIUM [Concomitant]
  13. MAGNESIUM [Concomitant]
  14. PROTONIX [Concomitant]
  15. VICODIN [Concomitant]
  16. BENADRYL [Concomitant]
  17. LORAZEPAM [Concomitant]
  18. REGLAN [Concomitant]
  19. SUCRALFATE [Concomitant]
  20. TYLENOL (CAPLET) [Concomitant]
  21. ABELCET [Concomitant]
  22. BIOTIN [Concomitant]

REACTIONS (4)
  - BLOOD CREATININE INCREASED [None]
  - SINUS TACHYCARDIA [None]
  - SUPRAVENTRICULAR EXTRASYSTOLES [None]
  - URINE OUTPUT DECREASED [None]
